FAERS Safety Report 9237449 (Version 1)
Quarter: 2013Q2

REPORT INFORMATION
  Report Type: Spontaneous
  Country: US (occurrence: US)
  Receive Date: 20130417
  Receipt Date: 20130417
  Transmission Date: 20140414
  Serious: No
  Sender: FDA-Public Use
  Company Number: US-PFIZER INC-2013115813

PATIENT
  Age: 88 Year
  Sex: Female
  Weight: 45.35 kg

DRUGS (3)
  1. ANTIVERT [Suspect]
     Dosage: 25 MG, 3X/DAY AS NEEDED
     Dates: start: 2006
  2. ANTIVERT [Suspect]
     Dosage: 12.5 MG, DAILY
  3. METOPROLOL [Suspect]
     Indication: HYPERTENSION
     Dosage: 12.5 MG, 2X/DAY

REACTIONS (3)
  - Dizziness [Recovered/Resolved]
  - Somnolence [Recovered/Resolved]
  - Therapeutic response unexpected [Unknown]
